FAERS Safety Report 24664869 (Version 1)
Quarter: 2024Q4

REPORT INFORMATION
  Report Type: Spontaneous
  Country: US (occurrence: US)
  Receive Date: 20241126
  Receipt Date: 20241126
  Transmission Date: 20250115
  Serious: Yes (Hospitalization)
  Sender: Alora Pharma
  Company Number: US-VERTICAL PHARMACEUTICALS-2024ALO00547

PATIENT
  Age: 66 Year
  Sex: Female

DRUGS (27)
  1. SUFENTANIL [Suspect]
     Active Substance: SUFENTANIL
     Indication: Pain management
     Dosage: 50 ?G/ML; 24-HOUR DOSE 65 MCG/D
     Route: 037
     Dates: start: 20080908
  2. SUFENTANIL [Suspect]
     Active Substance: SUFENTANIL
     Dosage: 50 ?G/ML; 24-HOUR DOSE 83 MCG/D
     Route: 037
     Dates: start: 20100923
  3. SUFENTANIL [Suspect]
     Active Substance: SUFENTANIL
     Dosage: 50 ?G/ML; 24-HOUR DOSE 90 MCG/D
     Route: 037
     Dates: start: 20120813
  4. SUFENTANIL [Suspect]
     Active Substance: SUFENTANIL
     Dosage: 100 ?G/ML; 24-HOUR DOSE 91 MCG/D
     Route: 037
     Dates: start: 20150708
  5. SUFENTANIL [Suspect]
     Active Substance: SUFENTANIL
     Dosage: 100 ?G/ML; 24-HOUR DOSE 91 MCG/D
     Route: 037
     Dates: start: 20180628
  6. SUFENTANIL [Suspect]
     Active Substance: SUFENTANIL
     Dosage: 100 ?G/ML; 24-HOUR DOSE 105 MCG/DL
     Route: 037
     Dates: start: 20190619
  7. SUFENTANIL [Suspect]
     Active Substance: SUFENTANIL
     Dosage: 100 ?G/ML; 24-HOUR DOSE 110 MCG/D
     Route: 037
     Dates: start: 20190820
  8. SUFENTANIL [Suspect]
     Active Substance: SUFENTANIL
     Dosage: 100 ?G/ML; 24-HOUR DOSE 114 MCG/D
     Route: 037
     Dates: start: 20200125
  9. SUFENTANIL [Suspect]
     Active Substance: SUFENTANIL
     Dosage: DECREASED BY APPROX 20%/DAY UNTIL 2 ?L/D
     Route: 037
  10. BUPIVACAINE [Concomitant]
     Active Substance: BUPIVACAINE
     Indication: Pain management
     Dosage: 3 MILLIGRAM PER MILLILITRE; 24-HOUR DOSE 4 MG/D
     Route: 037
     Dates: start: 20080908
  11. BUPIVACAINE [Concomitant]
     Active Substance: BUPIVACAINE
     Dosage: 3 MILLIGRAM PER MILLILITRE; 24-HOUR DOSE 5 MG/D
     Route: 037
     Dates: start: 20100923
  12. BUPIVACAINE [Concomitant]
     Active Substance: BUPIVACAINE
     Dosage: 5 MILLIGRAM PER MILLILITRE; 24-HOUR DOSE 9 MG/DL
     Route: 037
     Dates: start: 20120813
  13. BUPIVACAINE [Concomitant]
     Active Substance: BUPIVACAINE
     Dosage: 10 MILLIGRAM PER MILLILITRE; 24-HOUR DOSE 9 MG/D
     Route: 037
     Dates: start: 20150708
  14. BUPIVACAINE [Concomitant]
     Active Substance: BUPIVACAINE
     Dosage: 10 MILLIGRAM PER MILLILITRE 24-HOUR DOSE 9 MG/DL
     Route: 037
     Dates: start: 20180628
  15. BUPIVACAINE [Concomitant]
     Active Substance: BUPIVACAINE
     Dosage: 10 MILLIGRAM PER MILLILITRE; 24-HOUR DOSE 10.4 MG/DL
     Route: 037
     Dates: start: 20190619
  16. BUPIVACAINE [Concomitant]
     Active Substance: BUPIVACAINE
     Dosage: 7 MILLIGRAM PER MILLILITRE; 24-HOUR DOSE 11 MG/DL
     Route: 037
     Dates: start: 20190820
  17. BUPIVACAINE [Concomitant]
     Active Substance: BUPIVACAINE
     Dosage: 7 MILLIGRAM PER MILLILITRE; 24-HOUR DOSE 8 MG/D
     Route: 037
     Dates: start: 20200125
  18. BUPIVACAINE [Concomitant]
     Active Substance: BUPIVACAINE
     Dosage: DECREASED BY APPROX 20%/DAY UNTIL 2 ?L/D
     Route: 037
  19. CLONIDINE [Concomitant]
     Active Substance: CLONIDINE
     Indication: Pain management
     Dosage: 300 ?G/ML; 24-HOUR DOSE 390 MCG/D
     Route: 037
     Dates: start: 20080908
  20. CLONIDINE [Concomitant]
     Active Substance: CLONIDINE
     Dosage: 150 ?G/ML; 24-HOUR DOSE 250 MCG/D
     Route: 037
     Dates: start: 20100923
  21. CLONIDINE [Concomitant]
     Active Substance: CLONIDINE
     Dosage: 150 ?G/ML; 24-HOUR DOSE 270 MCG/D
     Route: 037
     Dates: start: 20120813
  22. CLONIDINE [Concomitant]
     Active Substance: CLONIDINE
     Dosage: 300 ?G/ML; 24-HOUR DOSE 270 MCG/DL
     Route: 037
     Dates: start: 20150708
  23. CLONIDINE [Concomitant]
     Active Substance: CLONIDINE
     Dosage: 300 ?G/ML; 24-HOUR DOSE 300 MCG/DL
     Route: 037
     Dates: start: 20180628
  24. CLONIDINE [Concomitant]
     Active Substance: CLONIDINE
     Dosage: 300 ?G/ML; 24-HOUR DOSE 314 MCG/DL
     Route: 037
     Dates: start: 20190619
  25. CLONIDINE [Concomitant]
     Active Substance: CLONIDINE
     Dosage: 200 ?G/ML; 24-HOUR DOSE 330 MCG/DL
     Route: 037
     Dates: start: 20190819
  26. CLONIDINE [Concomitant]
     Active Substance: CLONIDINE
     Dosage: 200 ?G/ML; 228 MCG/D
     Route: 037
     Dates: start: 20200125
  27. CLONIDINE [Concomitant]
     Active Substance: CLONIDINE
     Dosage: DECREASED BY APPROX 20%/DAY UNTIL 2 ?L/D
     Route: 037

REACTIONS (1)
  - Catheter site mass [Recovered/Resolved]

NARRATIVE: CASE EVENT DATE: 20200125
